FAERS Safety Report 7772261-2 (Version None)
Quarter: 2011Q3

REPORT INFORMATION
  Report Type: 
  Country: None (occurrence: None)
  Receive Date: 20110922
  Receipt Date: 20110721
  Transmission Date: 20111222
  Serious: Yes (Other)
  Sender: FDA-Public Use
  Company Number: US-ASTRAZENECA-2011SE43807

PATIENT
  Age: 34 Year
  Sex: Male
  Weight: 59 kg

DRUGS (3)
  1. ISPAGHULA [Concomitant]
     Dates: start: 20100531, end: 20100601
  2. SEROQUEL [Suspect]
     Indication: SCHIZOPHRENIA
     Route: 048
     Dates: start: 20100530, end: 20100603
  3. ALPRAZOLAM [Concomitant]
     Dates: start: 20100603

REACTIONS (1)
  - GRAND MAL CONVULSION [None]
